FAERS Safety Report 4761194-1 (Version None)
Quarter: 2005Q3

REPORT INFORMATION
  Report Type: 
  Country: None (occurrence: None)
  Receive Date: 20050902
  Receipt Date: 20050902
  Transmission Date: 20060218
  Serious: Yes (Other)
  Sender: FDA-Public Use
  Company Number: None

PATIENT
  Age: 79 Year
  Sex: Female
  Weight: 45.3597 kg

DRUGS (1)
  1. CREST PRO-HEALTH ORAL RINSE [Suspect]
     Indication: DENTAL DISORDER PROPHYLAXIS
     Dosage: ORAL RINSE TWICE A DAY WITH 20 ML.
     Route: 048
     Dates: start: 20050716, end: 20050806

REACTIONS (3)
  - PANIC REACTION [None]
  - TONGUE DISCOLOURATION [None]
  - TONGUE EXFOLIATION [None]
